FAERS Safety Report 21129041 (Version 2)
Quarter: 2022Q3

REPORT INFORMATION
  Report Type: Spontaneous
  Country: BR (occurrence: BR)
  Receive Date: 20220725
  Receipt Date: 20220803
  Transmission Date: 20221027
  Serious: Yes (Other)
  Sender: FDA-Public Use
  Company Number: BR-SA-SAC20220722000180

PATIENT
  Age: 69 Year
  Sex: Female
  Weight: 55 kg

DRUGS (4)
  1. THYMOGLOBULIN [Suspect]
     Active Substance: LAPINE T-LYMPHOCYTE IMMUNE GLOBULIN
     Indication: Immunosuppression
     Dosage: 175MG, QD
     Route: 042
     Dates: start: 20220716, end: 20220717
  2. HYDROCORTISONE [Concomitant]
     Active Substance: HYDROCORTISONE
     Dosage: 300MG, QD
     Route: 042
     Dates: start: 20220716, end: 20220716
  3. CEFAZOLIN [Concomitant]
     Active Substance: CEFAZOLIN
     Dosage: 1 G, TID
     Route: 042
     Dates: start: 20220716, end: 20220717
  4. DIPYRONE [Concomitant]
     Active Substance: DIPYRONE
     Dosage: 1 G, QID
     Route: 042

REACTIONS (2)
  - Bradycardia [Unknown]
  - Hypertension [Unknown]
